FAERS Safety Report 6603505-8 (Version None)
Quarter: 2010Q1

REPORT INFORMATION
  Report Type: 
  Country: None (occurrence: None)
  Receive Date: 20100226
  Receipt Date: 20090806
  Transmission Date: 20100710
  Serious: No
  Sender: FDA-Public Use
  Company Number: A0800944A

PATIENT
  Age: 52 Year
  Sex: Female

DRUGS (4)
  1. VALTREX [Suspect]
     Indication: HERPES VIRUS INFECTION
     Dosage: 1G PER DAY
     Route: 048
     Dates: start: 20050101
  2. PRAVASTATIN [Concomitant]
  3. TRAMADOL HCL [Concomitant]
  4. ZANAFLEX [Concomitant]

REACTIONS (3)
  - DRUG INEFFECTIVE [None]
  - HERPES VIRUS INFECTION [None]
  - INCORRECT DOSE ADMINISTERED [None]
